FAERS Safety Report 4639172-2 (Version None)
Quarter: 2005Q2

REPORT INFORMATION
  Report Type: 
  Country: None (occurrence: None)
  Receive Date: 20050418
  Receipt Date: 20050401
  Transmission Date: 20051028
  Serious: Yes (Hospitalization)
  Sender: FDA-Public Use
  Company Number: 213148

PATIENT
  Age: 76 Year
  Sex: Female
  Weight: 69 kg

DRUGS (10)
  1. AVASTIN [Suspect]
     Indication: COLON CANCER
     Dosage: 525 MG, Q3W, INTRAVENOUS
     Route: 042
     Dates: start: 20050113, end: 20050203
  2. CAPECITABINE (CAPECITABINE) [Suspect]
     Indication: COLON CANCER
     Dosage: 3300 MG, QDXX14D/21DC, ORAL
     Route: 048
     Dates: start: 20050113
  3. OXALIPLATIN(OXALIPLATIN) [Suspect]
     Indication: COLON CANCER
     Dosage: 230 MG, Q3W, INTRAVENOUS
     Route: 042
     Dates: start: 20050113
  4. OXALIPLATIN (OXALIPLATIN) [Suspect]
  5. LODOZ (HYDROCHLOROTHIAZIDE, BISOPROLOL FUMARATE) [Concomitant]
  6. TANAKAN (GINKGO BILOBA) [Concomitant]
  7. FENOFIBRATE [Concomitant]
  8. OXAZEPAM [Concomitant]
  9. ONDANSETRON HCL [Concomitant]
  10. METHYLPREDNISOLONE [Concomitant]

REACTIONS (2)
  - BLOOD ELECTROLYTES ABNORMAL [None]
  - CANDIDA SEPSIS [None]
